FAERS Safety Report 7684997-2 (Version None)
Quarter: 2011Q3

REPORT INFORMATION
  Report Type: 
  Country: None (occurrence: None)
  Receive Date: 20110816
  Receipt Date: 20110804
  Transmission Date: 20111222
  Serious: Yes (Other)
  Sender: FDA-Public Use
  Company Number: CA-JNJFOC-20110803971

PATIENT
  Sex: Male
  Weight: 99.4 kg

DRUGS (2)
  1. REMICADE [Suspect]
     Indication: COLITIS ULCERATIVE
     Route: 042
     Dates: start: 20090301
  2. REMICADE [Suspect]
     Route: 042
     Dates: start: 20110627

REACTIONS (1)
  - LIMB INJURY [None]
